FAERS Safety Report 9768375 (Version 1)
Quarter: 2013Q4

REPORT INFORMATION
  Report Type: Spontaneous
  Country: IT (occurrence: IT)
  Receive Date: 20131217
  Receipt Date: 20131217
  Transmission Date: 20140711
  Serious: Yes (Other)
  Sender: FDA-Public Use
  Company Number: IT-MYLANLABS-2013S1026426

PATIENT
  Age: 28 Year
  Sex: Female

DRUGS (3)
  1. FLUTAMIDE [Suspect]
     Indication: ACNE
     Route: 048
     Dates: start: 20130401, end: 20131002
  2. FLUTAMIDE [Suspect]
     Indication: OFF LABEL USE
     Route: 048
     Dates: start: 20130401, end: 20131002
  3. MERCILON [Concomitant]
     Indication: PRODUCT USED FOR UNKNOWN INDICATION

REACTIONS (3)
  - Hepatitis toxic [Unknown]
  - Off label use [Unknown]
  - Acne [Unknown]
